FAERS Safety Report 8488235-2 (Version None)
Quarter: 2012Q3

REPORT INFORMATION
  Report Type: 
  Country: None (occurrence: None)
  Receive Date: 20120705
  Receipt Date: 20120629
  Transmission Date: 20120928
  Serious: Yes (Death, Hospitalization, Other)
  Sender: FDA-Public Use
  Company Number: US-BAYER-2012-003067

PATIENT
  Age: 29 Year
  Sex: Female
  Weight: 121 kg

DRUGS (12)
  1. YAZ [Suspect]
     Indication: MENSTRUATION IRREGULAR
     Dosage: UNK
     Route: 048
     Dates: start: 20080401, end: 20081211
  2. MAXAIR [Concomitant]
     Dosage: UNK
     Route: 045
     Dates: start: 20050101, end: 20080101
  3. ZITHROMAX [Concomitant]
     Dosage: UNK
     Dates: start: 20070101, end: 20080101
  4. VERAMYST [Concomitant]
     Dosage: UNK
     Route: 045
     Dates: start: 20070101, end: 20080101
  5. IBUPROFEN (ADVIL) [Concomitant]
  6. NAPROXEN [Concomitant]
  7. YAZ [Suspect]
     Indication: PREMENSTRUAL SYNDROME
  8. SINGULAIR [Concomitant]
     Dosage: UNK
     Dates: start: 20080401, end: 20081201
  9. LEXAPRO [Concomitant]
     Dosage: UNK
     Dates: start: 20060101, end: 20080101
  10. DELSYM [Concomitant]
  11. PRILOSEC [Concomitant]
     Dosage: UNK
     Dates: start: 20050101, end: 20080101
  12. XYZAL [Concomitant]
     Dosage: UNK
     Dates: start: 20070101, end: 20080101

REACTIONS (9)
  - INJURY [None]
  - ANXIETY [None]
  - GENERAL PHYSICAL HEALTH DETERIORATION [None]
  - EMOTIONAL DISTRESS [None]
  - BRONCHITIS [None]
  - CARDIO-RESPIRATORY ARREST [None]
  - PAIN [None]
  - PULMONARY EMBOLISM [None]
  - DYSPNOEA [None]
